FAERS Safety Report 14172664 (Version 1)
Quarter: 2017Q4

REPORT INFORMATION
  Report Type: Spontaneous
  Country: BR (occurrence: BR)
  Receive Date: 20171109
  Receipt Date: 20171109
  Transmission Date: 20180321
  Serious: Yes (Other)
  Sender: FDA-Public Use
  Company Number: BR-CONCORDIA PHARMACEUTICALS INC.-GSH201711-006289

PATIENT
  Age: 69 Year
  Sex: Female
  Weight: 68 kg

DRUGS (4)
  1. ANASTROZOLE. [Concomitant]
     Active Substance: ANASTROZOLE
     Indication: BREAST CANCER
     Route: 065
     Dates: start: 2016
  2. METOPROLOL HYDROCHLOROTHIAZIDE TABLET [Suspect]
     Active Substance: HYDROCHLOROTHIAZIDE\METOPROLOL
     Indication: BLOOD PRESSURE MEASUREMENT
     Route: 048
     Dates: start: 1997
  3. VENLAFAXINE [Concomitant]
     Active Substance: VENLAFAXINE HYDROCHLORIDE
     Indication: BREAST CANCER
     Dates: start: 2016
  4. CALCITRANS TABLET [Concomitant]
     Indication: BREAST CANCER
     Route: 065
     Dates: start: 2016

REACTIONS (5)
  - Blood pressure increased [Not Recovered/Not Resolved]
  - Palpitations [Not Recovered/Not Resolved]
  - Tremor [Not Recovered/Not Resolved]
  - Drug dose omission [Not Recovered/Not Resolved]
  - Breast cancer [Recovering/Resolving]

NARRATIVE: CASE EVENT DATE: 201608
